FAERS Safety Report 24182697 (Version 1)
Quarter: 2024Q3

REPORT INFORMATION
  Report Type: Spontaneous
  Country: RU (occurrence: RU)
  Receive Date: 20240807
  Receipt Date: 20240807
  Transmission Date: 20241016
  Serious: Yes (Other)
  Sender: SANDOZ
  Company Number: RU-SANDOZ-SDZ2024RU070553

PATIENT
  Sex: Female
  Weight: 55 kg

DRUGS (2)
  1. METHOTREXATE [Suspect]
     Active Substance: METHOTREXATE
     Indication: Psoriatic arthropathy
     Dosage: 20 MG, QW
     Route: 030
     Dates: start: 202205, end: 20240802
  2. MOVASIN [Concomitant]
     Indication: Psoriatic arthropathy
     Dosage: 15 MG, QD (15 MG 1  TIME/DAY PER OS)
     Route: 048
     Dates: start: 20240726

REACTIONS (6)
  - Drug intolerance [Recovering/Resolving]
  - Therapy change [Recovering/Resolving]
  - Decreased appetite [Recovering/Resolving]
  - Nausea [Recovering/Resolving]
  - Asthenia [Recovering/Resolving]
  - Vomiting [Recovering/Resolving]

NARRATIVE: CASE EVENT DATE: 20240701
